FAERS Safety Report 4557137-6 (Version None)
Quarter: 2005Q1

REPORT INFORMATION
  Report Type: 
  Country: None (occurrence: None)
  Receive Date: 20050103
  Receipt Date: 20040910
  Transmission Date: 20050727
  Serious: Yes (Other)
  Sender: FDA-Public Use
  Company Number: 2004UW19271

PATIENT

DRUGS (1)
  1. CRESTOR [Suspect]

REACTIONS (1)
  - ADVERSE EVENT [None]
